FAERS Safety Report 5305939-0 (Version None)
Quarter: 2007Q2

REPORT INFORMATION
  Report Type: 
  Country: None (occurrence: None)
  Receive Date: 20070424
  Receipt Date: 20070413
  Transmission Date: 20071010
  Serious: Yes (Other)
  Sender: FDA-Public Use
  Company Number: US-JNJFOC-20070403120

PATIENT
  Sex: Male
  Weight: 70.76 kg

DRUGS (5)
  1. REMICADE [Suspect]
     Indication: CROHN'S DISEASE
     Route: 042
  2. AZATHIOPRINE [Concomitant]
  3. QUESTRAN [Concomitant]
  4. B-12 [Concomitant]
     Route: 050
  5. SEREVENT [Concomitant]
     Indication: ASTHMA

REACTIONS (6)
  - ARTHRITIS [None]
  - DIARRHOEA [None]
  - DYSPNOEA [None]
  - INFUSION RELATED REACTION [None]
  - SERUM SICKNESS [None]
  - URTICARIA [None]
